FAERS Safety Report 6198279-1 (Version None)
Quarter: 2009Q2

REPORT INFORMATION
  Report Type: 
  Country: None (occurrence: None)
  Receive Date: 20090521
  Receipt Date: 20090409
  Transmission Date: 20091009
  Serious: No
  Sender: FDA-Public Use
  Company Number: US-BAYER-200911220BCC

PATIENT
  Age: 3 Year
  Sex: Male

DRUGS (1)
  1. ALEVE [Suspect]
     Indication: ACCIDENTAL DRUG INTAKE BY CHILD
     Route: 045
     Dates: start: 20090409, end: 20090409

REACTIONS (2)
  - FOREIGN BODY TRAUMA [None]
  - NAUSEA [None]
